FAERS Safety Report 25143529 (Version 4)
Quarter: 2025Q3

REPORT INFORMATION
  Report Type: Spontaneous
  Country: BR (occurrence: BR)
  Receive Date: 20250401
  Receipt Date: 20250808
  Transmission Date: 20251021
  Serious: Yes (Life-Threatening, Other)
  Sender: SANDOZ
  Company Number: BR-002147023-NVSC2024BR069763

PATIENT
  Age: 53 Year
  Sex: Female
  Weight: 60 kg

DRUGS (13)
  1. ANASTROZOLE [Suspect]
     Active Substance: ANASTROZOLE
     Indication: Product used for unknown indication
     Route: 048
  2. KISQALI [Suspect]
     Active Substance: RIBOCICLIB SUCCINATE
     Route: 065
  3. KISQALI [Suspect]
     Active Substance: RIBOCICLIB SUCCINATE
     Indication: Metastases to bone
     Dosage: 3 DOSAGE FORM, QD
     Route: 065
     Dates: start: 2023
  4. KISQALI [Suspect]
     Active Substance: RIBOCICLIB SUCCINATE
     Route: 065
  5. KISQALI [Suspect]
     Active Substance: RIBOCICLIB SUCCINATE
     Dosage: 3 DOSAGE FORM, QD, ALL THREE TOGETHER  AFTER LUNCH
     Route: 065
     Dates: start: 202308, end: 202408
  6. KISQALI [Suspect]
     Active Substance: RIBOCICLIB SUCCINATE
     Route: 065
  7. KISQALI [Suspect]
     Active Substance: RIBOCICLIB SUCCINATE
     Dosage: 400 MG, QD (ADJUSTED DOSE FOR 21 DAYS EVERY 28 DAYS)
     Route: 048
  8. KISQALI [Suspect]
     Active Substance: RIBOCICLIB SUCCINATE
     Dosage: 600 MG, QD ( FOR 21 DAYS EVERY 28 DAYS)
     Route: 065
  9. KISQALI [Suspect]
     Active Substance: RIBOCICLIB SUCCINATE
     Indication: Breast cancer female
     Route: 065
     Dates: start: 2023
  10. ZOMETA [Suspect]
     Active Substance: ZOLEDRONIC ACID
     Dosage: 4 MG, EVERY 3 MONTHS (MAINTENANCE)
     Route: 042
  11. ZOMETA [Suspect]
     Active Substance: ZOLEDRONIC ACID
     Indication: Product used for unknown indication
     Dosage: UNK, Q3MO
     Route: 042
  12. ANASTROZOLE [Concomitant]
     Active Substance: ANASTROZOLE
     Indication: Breast cancer female
     Route: 065
     Dates: start: 2023
  13. ANASTROZOLE [Concomitant]
     Active Substance: ANASTROZOLE
     Indication: Metastases to bone

REACTIONS (41)
  - Feeling abnormal [Unknown]
  - Metastases to bone [Recovered/Resolved]
  - Metastasis [Unknown]
  - Retching [Unknown]
  - Infection [Unknown]
  - Toxicity to various agents [Unknown]
  - Hair disorder [Not Recovered/Not Resolved]
  - Gastrointestinal disorder [Unknown]
  - Skin burning sensation [Unknown]
  - Dry skin [Unknown]
  - Weight decreased [Unknown]
  - Urinary tract infection [Recovered/Resolved]
  - Urinary tract infection [Unknown]
  - Mouth ulceration [Unknown]
  - Swelling [Recovered/Resolved]
  - Skin disorder [Recovered/Resolved]
  - Helicobacter infection [Recovered/Resolved]
  - Helicobacter infection [Unknown]
  - Hypophagia [Recovered/Resolved]
  - Depression [Recovered/Resolved]
  - Decreased immune responsiveness [Recovering/Resolving]
  - Alopecia [Not Recovered/Not Resolved]
  - Diarrhoea [Unknown]
  - Abdominal pain upper [Unknown]
  - Vomiting [Unknown]
  - Nausea [Not Recovered/Not Resolved]
  - Pruritus [Recovered/Resolved]
  - Malaise [Recovered/Resolved]
  - Pyrexia [Unknown]
  - Chills [Unknown]
  - Fatigue [Unknown]
  - Pain [Unknown]
  - White blood cell count decreased [Recovering/Resolving]
  - Platelet count decreased [Unknown]
  - Malaise [Recovered/Resolved]
  - Asthenia [Recovered/Resolved]
  - Bone pain [Unknown]
  - Anxiety [Recovered/Resolved]
  - Pruritus [Unknown]
  - Urticaria [Unknown]
  - Malaise [Unknown]

NARRATIVE: CASE EVENT DATE: 20230201
